FAERS Safety Report 11591533 (Version 1)
Quarter: 2015Q4

REPORT INFORMATION
  Report Type: Spontaneous
  Country: US (occurrence: US)
  Receive Date: 20151005
  Receipt Date: 20151005
  Transmission Date: 20160304
  Serious: No
  Sender: FDA-Public Use
  Company Number: US-NOVEN PHARMACEUTICALS, INC.-14US010778

PATIENT

DRUGS (3)
  1. COMBIPATCH [Suspect]
     Active Substance: ESTRADIOL\NORETHINDRONE ACETATE
     Dosage: 1/2 X 50MG/250MG/DAY, TWICE WEEKLY
     Route: 062
     Dates: start: 201410
  2. COMBIPATCH [Suspect]
     Active Substance: ESTRADIOL\NORETHINDRONE ACETATE
     Indication: HOT FLUSH
     Dosage: 50MG/250MG/DAY, TWICE WEEKLY
     Route: 062
     Dates: start: 201410
  3. COMBIPATCH [Suspect]
     Active Substance: ESTRADIOL\NORETHINDRONE ACETATE
     Dosage: 1/4 X 50MG/250MG/DAY, TWICE WEEKLY
     Route: 062
     Dates: start: 201410

REACTIONS (8)
  - Feeling abnormal [Recovered/Resolved]
  - Irritability [Recovered/Resolved]
  - Wrong technique in product usage process [Not Recovered/Not Resolved]
  - Emotional disorder [Recovered/Resolved]
  - Aggression [Recovered/Resolved]
  - Tearfulness [Recovered/Resolved]
  - Metrorrhagia [Recovered/Resolved]
  - Drug ineffective [Not Recovered/Not Resolved]

NARRATIVE: CASE EVENT DATE: 201410
